FAERS Safety Report 18687816 (Version 1)
Quarter: 2020Q4

REPORT INFORMATION
  Report Type: Spontaneous
  Country: RU (occurrence: RU)
  Receive Date: 20201231
  Receipt Date: 20201231
  Transmission Date: 20210114
  Serious: Yes (Other)
  Sender: FDA-Public Use
  Company Number: RU-ROCHE-2736782

PATIENT
  Age: 52 Year
  Sex: Male

DRUGS (3)
  1. EMICIZUMAB. [Suspect]
     Active Substance: EMICIZUMAB
     Route: 058
  2. EMICIZUMAB. [Suspect]
     Active Substance: EMICIZUMAB
     Route: 058
     Dates: start: 2019
  3. EMICIZUMAB. [Suspect]
     Active Substance: EMICIZUMAB
     Indication: HAEMORRHAGE PROPHYLAXIS
     Route: 058
     Dates: start: 2018, end: 2019

REACTIONS (6)
  - Joint swelling [Recovered/Resolved]
  - Parosmia [Recovered/Resolved]
  - Pyrexia [Recovered/Resolved]
  - Throat irritation [Recovered/Resolved]
  - Arthralgia [Recovered/Resolved]
  - Procedural haemorrhage [Recovered/Resolved]

NARRATIVE: CASE EVENT DATE: 2019
